FAERS Safety Report 9081927 (Version 1)
Quarter: 2013Q1

REPORT INFORMATION
  Report Type: Report from Study
  Country: US (occurrence: US)
  Receive Date: 20130130
  Receipt Date: 20130130
  Transmission Date: 20140127
  Serious: Yes (Hospitalization)
  Sender: FDA-Public Use
  Company Number: US-ABBOTT-12P-163-0955070-00

PATIENT
  Age: 77 None
  Sex: Female
  Weight: 44.04 kg

DRUGS (16)
  1. HUMIRA 40 MG/0.8 ML PEN [Suspect]
     Indication: CROHN^S DISEASE
     Dates: start: 2007, end: 201204
  2. REMICADE [Suspect]
     Indication: CROHN^S DISEASE
     Dates: start: 20120517, end: 20120517
  3. LEVOXYL [Concomitant]
     Indication: HYPOTHYROIDISM
  4. WARFARIN [Concomitant]
     Indication: THROMBOSIS
  5. MEGNESIUM OXIDE [Concomitant]
     Indication: NEPHROLITHIASIS
  6. ATENOLOL [Concomitant]
     Indication: HEART RATE IRREGULAR
  7. OMEPRAZOLE [Concomitant]
     Indication: DYSPEPSIA
  8. OMEPRAZOLE [Concomitant]
     Indication: REGURGITATION
  9. SODIUM BICARBONATE [Concomitant]
     Indication: NEPHROLITHIASIS
  10. FOSOMAX [Concomitant]
     Indication: OSTEOPOROSIS
  11. FERROUS SULFATE [Concomitant]
     Indication: BLOOD IRON DECREASED
  12. CALCIUM WITH VITAMIN D [Concomitant]
     Indication: PRODUCT USED FOR UNKNOWN INDICATION
  13. ADVANCE FORMULA A TO Z [Concomitant]
     Indication: PRODUCT USED FOR UNKNOWN INDICATION
  14. B-12 [Concomitant]
     Indication: VITAMIN B COMPLEX DEFICIENCY
     Route: 050
  15. POTASSIUM CITRATE [Concomitant]
     Indication: NEPHROLITHIASIS
  16. VITAMIN D [Concomitant]
     Indication: VITAMIN D DECREASED

REACTIONS (17)
  - Syncope [Recovering/Resolving]
  - Viral infection [Recovering/Resolving]
  - Fall [Recovered/Resolved]
  - Contusion [Recovered/Resolved]
  - Abdominal pain [Not Recovered/Not Resolved]
  - Gastrointestinal disorder [Not Recovered/Not Resolved]
  - Gastrointestinal infection [Not Recovered/Not Resolved]
  - Injection site pain [Not Recovered/Not Resolved]
  - Drug ineffective [Recovering/Resolving]
  - Cough [Recovering/Resolving]
  - Chills [Recovering/Resolving]
  - Headache [Recovering/Resolving]
  - Burning sensation [Recovering/Resolving]
  - Diarrhoea [Recovering/Resolving]
  - Flatulence [Recovering/Resolving]
  - Abdominal pain [Unknown]
  - Malaise [Recovering/Resolving]
